FAERS Safety Report 5114579-8 (Version None)
Quarter: 2006Q3

REPORT INFORMATION
  Report Type: 
  Country: None (occurrence: None)
  Receive Date: 20060926
  Receipt Date: 20060913
  Transmission Date: 20061208
  Serious: Yes (Other)
  Sender: FDA-Public Use
  Company Number: SEWYE946518SEP06

PATIENT
  Age: 56 Year

DRUGS (1)
  1. ENBREL [Suspect]
     Indication: DRUG USE FOR UNKNOWN INDICATION

REACTIONS (2)
  - ARTHRITIS BACTERIAL [None]
  - INFECTION IN AN IMMUNOCOMPROMISED HOST [None]
